FAERS Safety Report 7951627-1 (Version None)
Quarter: 2011Q4

REPORT INFORMATION
  Report Type: 
  Country: None (occurrence: None)
  Receive Date: 20111130
  Receipt Date: 20111130
  Transmission Date: 20120403
  Serious: Yes (Hospitalization)
  Sender: FDA-Public Use
  Company Number: None

PATIENT
  Sex: Male

DRUGS (2)
  1. PEGASYS [Suspect]
     Dosage: 180MCG ONCE WEEKLY SUB-Q
     Route: 058
     Dates: start: 20110908, end: 20111109
  2. RIBASPHERE [Suspect]
     Dosage: 200MG 3XMORN/NITE ORALLY
     Route: 048
     Dates: start: 20110908, end: 20111109

REACTIONS (1)
  - CARDIAC DISORDER [None]
